FAERS Safety Report 22389931 (Version 2)
Quarter: 2023Q2

REPORT INFORMATION
  Report Type: Report from Study
  Country: AU (occurrence: AU)
  Receive Date: 20230531
  Receipt Date: 20230605
  Transmission Date: 20230722
  Serious: Yes (Hospitalization)
  Sender: FDA-Public Use
  Company Number: AU-REGENERON PHARMACEUTICALS, INC.-2023-069167

PATIENT
  Age: 65 Year
  Sex: Male

DRUGS (3)
  1. FIANLIMAB [Suspect]
     Active Substance: FIANLIMAB
     Indication: Malignant melanoma stage IV
     Dosage: 50 MG/ML - 16ML, Q3W
     Route: 042
     Dates: start: 20230228
  2. CEMIPLIMAB [Suspect]
     Active Substance: CEMIPLIMAB
     Indication: Malignant melanoma stage IV
     Dosage: 50 MG/ML-7ML, Q3W
     Route: 042
     Dates: start: 20230228
  3. ACETAMINOPHEN [Concomitant]
     Active Substance: ACETAMINOPHEN
     Indication: Prophylaxis
     Dosage: 1 G, PRN
     Route: 048
     Dates: start: 20230215

REACTIONS (1)
  - Hypopituitarism [Recovered/Resolved]

NARRATIVE: CASE EVENT DATE: 20230522
